FAERS Safety Report 6757989-5 (Version None)
Quarter: 2010Q2

REPORT INFORMATION
  Report Type: 
  Country: None (occurrence: None)
  Receive Date: 20100607
  Receipt Date: 20100602
  Transmission Date: 20101027
  Serious: Yes (Death)
  Sender: FDA-Public Use
  Company Number: CO-MILLENNIUM PHARMACEUTICALS, INC.-2010-02940

PATIENT

DRUGS (3)
  1. VELCADE [Suspect]
     Dosage: UNK
     Dates: start: 20100406
  2. DOXORUBICIN HCL [Concomitant]
     Dosage: UNK
     Dates: start: 20100406
  3. DEXAMETHASONE [Concomitant]
     Dosage: UNK
     Dates: start: 20100406

REACTIONS (1)
  - DEATH [None]
